FAERS Safety Report 7758485-9 (Version None)
Quarter: 2011Q3

REPORT INFORMATION
  Report Type: 
  Country: None (occurrence: None)
  Receive Date: 20110914
  Receipt Date: 20110903
  Transmission Date: 20111222
  Serious: Yes (Hospitalization, Other)
  Sender: FDA-Public Use
  Company Number: 2011SP041932

PATIENT
  Sex: Male

DRUGS (3)
  1. RIBAVIRIN [Suspect]
     Indication: HEPATITIS C
     Dates: start: 20110701
  2. STEROIDS [Concomitant]
  3. PEG-INTRON [Suspect]
     Indication: HEPATITIS C
     Dates: start: 20110701

REACTIONS (10)
  - RETCHING [None]
  - LOSS OF CONSCIOUSNESS [None]
  - BLOOD URINE PRESENT [None]
  - ASTHENIA [None]
  - WEIGHT DECREASED [None]
  - OROPHARYNGEAL BLISTERING [None]
  - VOMITING [None]
  - VASCULAR RUPTURE [None]
  - DRUG HYPERSENSITIVITY [None]
  - RENAL FAILURE [None]
